FAERS Safety Report 6656877-2 (Version None)
Quarter: 2010Q1

REPORT INFORMATION
  Report Type: 
  Country: None (occurrence: None)
  Receive Date: 20100329
  Receipt Date: 20100329
  Transmission Date: 20100710
  Serious: Yes (Disabling)
  Sender: FDA-Public Use
  Company Number: None

PATIENT
  Age: 58 Year
  Sex: Male
  Weight: 78.4723 kg

DRUGS (3)
  1. VERAMYST [Suspect]
     Indication: EYE PRURITUS
     Dosage: 1 SPRAY EACH NOSTRIL 1 PER DAY NASAL
     Route: 045
     Dates: start: 20100324, end: 20100325
  2. VERAMYST [Suspect]
     Indication: NASAL DISORDER
     Dosage: 1 SPRAY EACH NOSTRIL 1 PER DAY NASAL
     Route: 045
     Dates: start: 20100324, end: 20100325
  3. VERAMYST [Suspect]
     Indication: SEASONAL ALLERGY
     Dosage: 1 SPRAY EACH NOSTRIL 1 PER DAY NASAL
     Route: 045
     Dates: start: 20100324, end: 20100325

REACTIONS (2)
  - RETINOSCHISIS [None]
  - VISUAL ACUITY REDUCED [None]
